FAERS Safety Report 7904000-6 (Version None)
Quarter: 2011Q4

REPORT INFORMATION
  Report Type: 
  Country: None (occurrence: None)
  Receive Date: 20111109
  Receipt Date: 20111028
  Transmission Date: 20120403
  Serious: Yes (Death)
  Sender: FDA-Public Use
  Company Number: US-ALEXION PHARMACEUTICALS INC.-A201101657

PATIENT
  Sex: Male

DRUGS (1)
  1. SOLIRIS [Suspect]
     Dosage: UNK
     Route: 042
     Dates: end: 20110809

REACTIONS (3)
  - MULTI-ORGAN FAILURE [None]
  - GRAFT VERSUS HOST DISEASE [None]
  - THROMBOTIC MICROANGIOPATHY [None]
